FAERS Safety Report 16557876 (Version 1)
Quarter: 2019Q3

REPORT INFORMATION
  Report Type: Spontaneous
  Country: US (occurrence: US)
  Receive Date: 20190529
  Receipt Date: 20190529
  Transmission Date: 20191004
  Serious: Yes (Life-Threatening, Hospitalization)
  Sender: FDA-Public Use
  Company Number: None

PATIENT
  Age: 58 Year
  Sex: Female

DRUGS (17)
  1. ROSUVASTATIN. [Concomitant]
     Active Substance: ROSUVASTATIN
  2. DIAZEPAM. [Concomitant]
     Active Substance: DIAZEPAM
  3. LIOTHYRONINE [Concomitant]
     Active Substance: LIOTHYRONINE
  4. PRASUGREL. [Concomitant]
     Active Substance: PRASUGREL
  5. LOSARTAN. [Concomitant]
     Active Substance: LOSARTAN
  6. ALPRAMZOLAM [Concomitant]
  7. BREO ELLIPTA [Concomitant]
     Active Substance: FLUTICASONE FUROATE\VILANTEROL TRIFENATATE
  8. CARVEDILOL. [Concomitant]
     Active Substance: CARVEDILOL
  9. DILOXETINE [Concomitant]
  10. COSENTYX [Suspect]
     Active Substance: SECUKINUMAB
     Indication: PSORIASIS
     Route: 058
     Dates: start: 20190412
  11. ASPIRIN. [Concomitant]
     Active Substance: ASPIRIN
  12. LANTUS SOLOS [Concomitant]
  13. LEVOTHYROXIN [Concomitant]
     Active Substance: LEVOTHYROXINE
  14. METHOCARBAM [Concomitant]
     Active Substance: METHOCARBAMOL
  15. NYSTOP [Concomitant]
     Active Substance: NYSTATIN
  16. SPIRIVA [Concomitant]
     Active Substance: TIOTROPIUM BROMIDE MONOHYDRATE
  17. CYCLOBENZAPR [Concomitant]
     Active Substance: CYCLOBENZAPRINE

REACTIONS (1)
  - Myocardial infarction [None]

NARRATIVE: CASE EVENT DATE: 20190528
